FAERS Safety Report 11539399 (Version 1)
Quarter: 2015Q3

REPORT INFORMATION
  Report Type: Spontaneous
  Country: BR (occurrence: BR)
  Receive Date: 20150923
  Receipt Date: 20150923
  Transmission Date: 20151125
  Serious: Yes (Hospitalization, Other)
  Sender: FDA-Public Use
  Company Number: BR-TORRENT-00003120

PATIENT
  Age: 58 Year
  Sex: Female
  Weight: 76 kg

DRUGS (6)
  1. ANASTROZOLE. [Concomitant]
     Active Substance: ANASTROZOLE
     Indication: BREAST CANCER
     Dosage: ONCE DAILY/ ORAL
     Route: 048
  2. MICARDIS [Concomitant]
     Active Substance: TELMISARTAN
     Indication: HYPERTENSION
     Dosage: ONCE DAILY/ ORAL
     Route: 048
  3. CLOBAZAM [Concomitant]
     Active Substance: CLOBAZAM
     Indication: SEDATIVE THERAPY
     Dosage: ONCE DAILY/ ORAL
     Route: 048
  4. VENLIFT OD [Suspect]
     Active Substance: VENLAFAXINE HYDROCHLORIDE
     Indication: DEPRESSION
     Dosage: ONCE DAILY/ ORAL
     Route: 048
  5. PANTOPRAZOLE [Concomitant]
     Active Substance: PANTOPRAZOLE SODIUM
     Indication: HIATUS HERNIA
     Dosage: ONCE DAILY/ ORAL
     Route: 048
  6. VENLIFT OD [Suspect]
     Active Substance: VENLAFAXINE HYDROCHLORIDE
     Indication: DEPRESSION
     Dosage: ONCE DAILY/ ORAL
     Route: 048
     Dates: start: 201402

REACTIONS (8)
  - Osteoporosis [Not Recovered/Not Resolved]
  - Weight increased [Unknown]
  - Blood triglycerides increased [Not Recovered/Not Resolved]
  - Headache [Not Recovered/Not Resolved]
  - Blood cholesterol increased [Not Recovered/Not Resolved]
  - Breast cancer [Unknown]
  - Neck pain [Not Recovered/Not Resolved]
  - Panic disorder [Not Recovered/Not Resolved]

NARRATIVE: CASE EVENT DATE: 201306
